FAERS Safety Report 19515361 (Version 2)
Quarter: 2021Q3

REPORT INFORMATION
  Report Type: Report from Study
  Country: CA (occurrence: CA)
  Receive Date: 20210709
  Receipt Date: 20210819
  Transmission Date: 20211014
  Serious: Yes (Hospitalization)
  Sender: FDA-Public Use
  Company Number: NVSC2021CA153426

PATIENT
  Sex: Female

DRUGS (4)
  1. PIQRAY [Suspect]
     Active Substance: ALPELISIB
     Indication: BREAST CANCER METASTATIC
  2. FULVESTRANT. [Suspect]
     Active Substance: FULVESTRANT
     Indication: PIK3CA-ACTIVATED MUTATION
     Dosage: UNK
     Route: 048
     Dates: start: 20210426
  3. FULVESTRANT. [Suspect]
     Active Substance: FULVESTRANT
     Indication: BREAST CANCER METASTATIC
  4. PIQRAY [Suspect]
     Active Substance: ALPELISIB
     Indication: PIK3CA-ACTIVATED MUTATION
     Dosage: UNK
     Route: 048
     Dates: start: 20210426

REACTIONS (3)
  - Limb discomfort [Unknown]
  - Dyspnoea [Unknown]
  - Drug ineffective [Unknown]
